FAERS Safety Report 9822094 (Version 2)
Quarter: 2014Q1

REPORT INFORMATION
  Report Type: Spontaneous
  Country: US (occurrence: US)
  Receive Date: 20140116
  Receipt Date: 20140318
  Transmission Date: 20141002
  Serious: Yes (Hospitalization, Other)
  Sender: FDA-Public Use
  Company Number: PHHY2014US003391

PATIENT
  Age: 69 Year
  Sex: Female

DRUGS (22)
  1. CIMETIDINE [Suspect]
     Dosage: 300 MG, UNK
  2. FLUOXETINE [Interacting]
     Dosage: 20 MG, UNK
  3. RANEXA [Interacting]
     Indication: ANGINA PECTORIS
     Dosage: 500 MG, UNK
  4. ATORVASTATIN [Concomitant]
     Dosage: 80 MG, QHS
  5. KCL [Concomitant]
     Dosage: 20 MEQ, UNK
  6. LOSARTAN [Concomitant]
     Dosage: 100 MG, UNK
  7. AMLODIPINE [Concomitant]
     Dosage: 5 MG, UNK
  8. AMLODIPINE [Concomitant]
     Dosage: 5 MG, UNK
  9. ALPRAZOLAM [Concomitant]
     Dosage: 0.25 MG, TID
  10. ATENOLOL [Concomitant]
     Dosage: 100 MG, UNK
  11. ATENOLOL [Concomitant]
     Dosage: 100 MG, UNK
  12. ISOSORBIDE [Concomitant]
     Dosage: 60 MG, UNK
  13. CLOPIDOGREL [Concomitant]
     Dosage: 75 MG, UNK
  14. BUMETANIDE [Concomitant]
     Dosage: 1 MG, PRN
  15. ALBUTEROL [Concomitant]
  16. ATROVENT [Concomitant]
  17. MELOXICAM [Concomitant]
     Dosage: 15 MG, UNK
  18. PANTOPRAZOLE [Concomitant]
     Dosage: 40 MG, UNK
  19. NTG [Concomitant]
     Dosage: 0.4 MG, PRN
  20. NTG [Concomitant]
     Dosage: 0.4 MG, BID
  21. CEFTRIAXONE [Concomitant]
     Dosage: 1 G, UNK
     Route: 042
  22. ASPIRIN [Concomitant]
     Dosage: 325 MG, UNK

REACTIONS (12)
  - Torsade de pointes [Recovered/Resolved]
  - Unresponsive to stimuli [Recovered/Resolved]
  - Bradycardia [Recovered/Resolved]
  - Cardio-respiratory arrest [Recovered/Resolved]
  - Lethargy [Recovered/Resolved]
  - Dyspnoea [Recovered/Resolved]
  - Chest pain [Recovered/Resolved]
  - Vomiting [Recovered/Resolved]
  - Hypomagnesaemia [Recovered/Resolved]
  - Hypokalaemia [Recovered/Resolved]
  - Ventricular tachycardia [Recovered/Resolved]
  - Drug interaction [Unknown]
